FAERS Safety Report 9033721 (Version 1)
Quarter: 2013Q1

REPORT INFORMATION
  Report Type: Spontaneous
  Country: US (occurrence: US)
  Receive Date: 20130128
  Receipt Date: 20130128
  Transmission Date: 20140127
  Serious: Yes (Other)
  Sender: FDA-Public Use
  Company Number: US-AMGEN-USASP2012075276

PATIENT
  Age: 63 Year
  Sex: Female
  Weight: 68.03 kg

DRUGS (14)
  1. ENBREL [Suspect]
     Indication: RHEUMATOID ARTHRITIS
     Dosage: 50 MG, QWK
     Route: 058
  2. EXEMESTAN [Concomitant]
     Dosage: 25 MG, UNK
  3. ALLEGRA [Concomitant]
     Dosage: 180 MG, UNK
  4. ALENDRONATE [Concomitant]
     Dosage: 35 MG, UNK
  5. DESIPRAMINE [Concomitant]
     Dosage: 150 MG, UNK
  6. NEXIUM                             /01479302/ [Concomitant]
     Dosage: 10 MG DR, UNK
  7. POTASSIUM [Concomitant]
     Dosage: 95 MG, UNK
  8. VITAMIN D /00107901/ [Concomitant]
     Dosage: 1000 UNIT, UNK
  9. ZINC [Concomitant]
     Dosage: 30 MG, UNK
  10. RANITIDINE [Concomitant]
     Dosage: 15 MG/ML, UNK
  11. FOLIC ACID [Concomitant]
     Dosage: UNK
  12. VITAMIN B-12 [Concomitant]
     Dosage: 100 MUG, UNK
  13. PERI-COLACE [Concomitant]
     Dosage: 8.6-50 MG
  14. B12                                /00056201/ [Concomitant]
     Dosage: 1 MG, UNK

REACTIONS (2)
  - Breast cancer [Unknown]
  - Infection [Unknown]
